FAERS Safety Report 5757491-3 (Version None)
Quarter: 2008Q2

REPORT INFORMATION
  Report Type: 
  Country: None (occurrence: None)
  Receive Date: 20080603
  Receipt Date: 20080530
  Transmission Date: 20081010
  Serious: Yes (Life-Threatening, Hospitalization)
  Sender: FDA-Public Use
  Company Number: US-BOEHRINGER INGELHEIM GMBH, GERMANY-2008-BP-07444BP

PATIENT
  Age: 80 Year
  Sex: Male

DRUGS (1)
  1. FLOMAX [Suspect]

REACTIONS (5)
  - ALCOHOL POISONING [None]
  - CONFUSIONAL STATE [None]
  - HYPOTENSION [None]
  - OVERDOSE [None]
  - SUICIDAL IDEATION [None]
